FAERS Safety Report 13746187 (Version 3)
Quarter: 2017Q4

REPORT INFORMATION
  Report Type: Report from Study
  Country: US (occurrence: US)
  Receive Date: 20170712
  Receipt Date: 20171215
  Transmission Date: 20180320
  Serious: Yes (Other)
  Sender: FDA-Public Use
  Company Number: US-ALEXION PHARMACEUTICALS INC.-A201707383

PATIENT
  Age: 27 Year
  Sex: Female
  Weight: 166 kg

DRUGS (14)
  1. SOLIRIS [Suspect]
     Active Substance: ECULIZUMAB
     Indication: HAEMOLYTIC URAEMIC SYNDROME
     Dosage: 900 MG, QW
     Route: 042
     Dates: start: 20140901
  2. PENICILLIN VK [Concomitant]
     Active Substance: PENICILLIN V POTASSIUM
     Indication: ANTIBIOTIC THERAPY
     Route: 065
  3. HYDROCORTISONE. [Concomitant]
     Active Substance: HYDROCORTISONE
     Indication: PRODUCT USED FOR UNKNOWN INDICATION
     Dosage: UNK, PRN
     Route: 061
  4. PREDNISONE. [Concomitant]
     Active Substance: PREDNISONE
     Dosage: 5 MG, TID
     Route: 065
  5. AVIANE [Concomitant]
     Active Substance: ETHINYL ESTRADIOL\LEVONORGESTREL
     Indication: PRODUCT USED FOR UNKNOWN INDICATION
     Dosage: 1 TAB
     Route: 048
  6. VITAMIN D3 [Concomitant]
     Active Substance: CHOLECALCIFEROL
     Indication: PRODUCT USED FOR UNKNOWN INDICATION
     Dosage: 5000 IU, UNK
     Route: 048
  7. FERROUS SULFATE. [Concomitant]
     Active Substance: FERROUS SULFATE
     Indication: PRODUCT USED FOR UNKNOWN INDICATION
     Dosage: 325 MG, QD
     Route: 048
  8. TRIAMCINOLONE ACETONIDE. [Concomitant]
     Active Substance: TRIAMCINOLONE ACETONIDE
     Indication: PRODUCT USED FOR UNKNOWN INDICATION
     Dosage: UNK, PRN
     Route: 061
  9. ZOSYN [Concomitant]
     Active Substance: PIPERACILLIN SODIUM\TAZOBACTAM SODIUM
     Indication: ANTIBIOTIC THERAPY
     Route: 065
  10. LUTERA [Concomitant]
     Active Substance: ETHINYL ESTRADIOL\LEVONORGESTREL
     Indication: PRODUCT USED FOR UNKNOWN INDICATION
     Dosage: 0.1 MG-20 MCG, QD 1 TAB
     Route: 048
  11. SOLIRIS [Suspect]
     Active Substance: ECULIZUMAB
     Dosage: 1200 MG, Q2W
     Route: 042
  12. CAFERGOT [Concomitant]
     Active Substance: CAFFEINE\ERGOTAMINE TARTRATE
     Indication: PRODUCT USED FOR UNKNOWN INDICATION
     Dosage: 1MG-100MG
     Route: 048
  13. KETOCONAZOLE. [Concomitant]
     Active Substance: KETOCONAZOLE
     Indication: PRODUCT USED FOR UNKNOWN INDICATION
     Route: 065
  14. PREDNISONE. [Concomitant]
     Active Substance: PREDNISONE
     Indication: PRODUCT USED FOR UNKNOWN INDICATION
     Dosage: 70 MG, QD
     Route: 048

REACTIONS (62)
  - Depressed mood [Unknown]
  - Decreased interest [Unknown]
  - Weight increased [Unknown]
  - Microangiopathy [Unknown]
  - Heart rate irregular [Unknown]
  - Polydipsia [Unknown]
  - Dyspepsia [Unknown]
  - Dysuria [Unknown]
  - Chest pain [Unknown]
  - Oedema [Unknown]
  - Haematochezia [Unknown]
  - Visual impairment [Unknown]
  - Oropharyngeal pain [Unknown]
  - Menorrhagia [Recovering/Resolving]
  - Body tinea [Unknown]
  - Orthopnoea [Unknown]
  - Muscular weakness [Unknown]
  - Rash [Unknown]
  - Back pain [Unknown]
  - Anxiety [Unknown]
  - Depression [Unknown]
  - Haemoglobin decreased [Unknown]
  - Night sweats [Unknown]
  - Laryngitis [Unknown]
  - Hyperphagia [Unknown]
  - Tremor [Unknown]
  - Insomnia [Unknown]
  - Pruritus [Unknown]
  - Paranasal sinus discomfort [Unknown]
  - Gait disturbance [Unknown]
  - Palpitations [Unknown]
  - Arthralgia [Unknown]
  - Joint swelling [Unknown]
  - Urticaria [Unknown]
  - Eosinophil count decreased [Unknown]
  - Pyrexia [Unknown]
  - Urinary retention [Unknown]
  - Lymphadenopathy [Unknown]
  - Hypoaesthesia [Unknown]
  - Temperature intolerance [Unknown]
  - Vomiting [Unknown]
  - Dyspnoea [Unknown]
  - Chills [Unknown]
  - Seizure [Unknown]
  - Red blood cell count decreased [Unknown]
  - Dysmenorrhoea [Unknown]
  - Polyuria [Unknown]
  - Intermittent claudication [Unknown]
  - Vaginal discharge [Unknown]
  - Ear pain [Unknown]
  - Gastrooesophageal reflux disease [Unknown]
  - Abdominal pain [Unknown]
  - Cough [Unknown]
  - Haematuria [Unknown]
  - Fatigue [Unknown]
  - Malaise [Unknown]
  - Blood disorder [Unknown]
  - Vitamin D deficiency [Unknown]
  - Deafness [Unknown]
  - Seasonal allergy [Unknown]
  - Iron deficiency anaemia [Recovered/Resolved]
  - Haematocrit decreased [Unknown]

NARRATIVE: CASE EVENT DATE: 20150601
